FAERS Safety Report 24223558 (Version 1)
Quarter: 2024Q3

REPORT INFORMATION
  Report Type: Spontaneous
  Country: US (occurrence: None)
  Receive Date: 20240817
  Receipt Date: 20240817
  Transmission Date: 20241016
  Serious: Yes (Hospitalization)
  Sender: Public
  Company Number: None

PATIENT
  Sex: Male
  Weight: 88.7 kg

DRUGS (3)
  1. CARBOPLATIN [Suspect]
     Active Substance: CARBOPLATIN
  2. PEMBROLIZUMAB [Concomitant]
     Active Substance: PEMBROLIZUMAB
  3. ALIMTA [Concomitant]
     Active Substance: PEMETREXED DISODIUM

REACTIONS (5)
  - Dyspepsia [None]
  - Pneumonia [None]
  - Chills [None]
  - Diverticulitis [None]
  - Acute myocardial infarction [None]

NARRATIVE: CASE EVENT DATE: 20240814
